FAERS Safety Report 13617835 (Version 3)
Quarter: 2018Q2

REPORT INFORMATION
  Report Type: Spontaneous
  Country: US (occurrence: US)
  Receive Date: 20170606
  Receipt Date: 20180530
  Transmission Date: 20180711
  Serious: No
  Sender: FDA-Public Use
  Company Number: US-LEXICON PHARMACEUTICALS, INC-17-1606-00191

PATIENT
  Age: 72 Year
  Sex: Female
  Weight: 54.03 kg

DRUGS (18)
  1. TELOTRISTAT ETHYL [Suspect]
     Active Substance: TELOTRISTAT ETHYL
     Indication: DIARRHOEA
     Route: 048
     Dates: start: 2017, end: 201710
  2. XANAX [Concomitant]
     Active Substance: ALPRAZOLAM
  3. KEPPRA [Concomitant]
     Active Substance: LEVETIRACETAM
     Dates: end: 20180126
  4. TELOTRISTAT ETHYL [Suspect]
     Active Substance: TELOTRISTAT ETHYL
     Indication: CARCINOID SYNDROME
     Route: 048
     Dates: start: 20170331, end: 20170501
  5. TRAMADOL. [Concomitant]
     Active Substance: TRAMADOL
  6. TELOTRISTAT ETHYL [Suspect]
     Active Substance: TELOTRISTAT ETHYL
     Dosage: OFF FOR ONE MONTH IN OCT2017
     Route: 048
     Dates: start: 201710
  7. NICOTINE STEP 1 [Concomitant]
  8. DILANTIN EXTENDED [Concomitant]
  9. MIRTAZAPINE. [Concomitant]
     Active Substance: MIRTAZAPINE
  10. LOMOTIL [Concomitant]
     Active Substance: ATROPINE SULFATE\DIPHENOXYLATE HYDROCHLORIDE
     Dosage: 2.5 MG - 0.025 MG
  11. DIPHENOXYLATE, ATROPINE [Concomitant]
  12. LISINOPRIL. [Concomitant]
     Active Substance: LISINOPRIL
  13. SANDOSTATIN LAR DEPOT [Concomitant]
     Active Substance: OCTREOTIDE ACETATE
     Route: 030
     Dates: start: 20160418
  14. PROMETHAZINE [Concomitant]
     Active Substance: PROMETHAZINE\PROMETHAZINE HYDROCHLORIDE
  15. CELEXA [Concomitant]
     Active Substance: CITALOPRAM HYDROBROMIDE
  16. CITALOPRAM [Concomitant]
     Active Substance: CITALOPRAM HYDROBROMIDE
  17. OXYCODONE [Concomitant]
     Active Substance: OXYCODONE
  18. VITAMIN D3 [Concomitant]
     Active Substance: CHOLECALCIFEROL
     Indication: VITAMIN D DEFICIENCY

REACTIONS (12)
  - Gastrointestinal bacterial overgrowth [Not Recovered/Not Resolved]
  - Back pain [Recovered/Resolved]
  - Faeces discoloured [Not Recovered/Not Resolved]
  - Vitamin D deficiency [Recovered/Resolved]
  - Vomiting [Unknown]
  - Diarrhoea [Recovered/Resolved]
  - Fatigue [Recovered/Resolved]
  - Blood alkaline phosphatase increased [Unknown]
  - Gastrooesophageal reflux disease [Not Recovered/Not Resolved]
  - Adhesion [Not Recovered/Not Resolved]
  - Abdominal pain [Recovered/Resolved]
  - Nausea [Unknown]

NARRATIVE: CASE EVENT DATE: 20170503
